FAERS Safety Report 21028125 (Version 1)
Quarter: 2022Q2

REPORT INFORMATION
  Report Type: Spontaneous
  Country: US (occurrence: US)
  Receive Date: 20220630
  Receipt Date: 20220630
  Transmission Date: 20220721
  Serious: No
  Sender: FDA-Public Use
  Company Number: US-INCYTE CORPORATION-2022IN006226

PATIENT

DRUGS (2)
  1. JAKAFI [Suspect]
     Active Substance: RUXOLITINIB
     Indication: Haemophagocytic lymphohistiocytosis
     Dosage: 5 MILLIGRAM, 2 TABS IN THE MORNING AND 1 TAB IN THE EVENING
     Route: 048
  2. OXCARBAZEPINE [Concomitant]
     Active Substance: OXCARBAZEPINE
     Indication: Product used for unknown indication
     Route: 065

REACTIONS (3)
  - Pain [Unknown]
  - Off label use [Unknown]
  - Headache [Unknown]
